FAERS Safety Report 6237935-3 (Version None)
Quarter: 2009Q2

REPORT INFORMATION
  Report Type: 
  Country: None (occurrence: None)
  Receive Date: 20090622
  Receipt Date: 20090612
  Transmission Date: 20091009
  Serious: Yes (Death)
  Sender: FDA-Public Use
  Company Number: US-JNJFOC-20090605046

PATIENT
  Sex: Female

DRUGS (1)
  1. REMICADE [Suspect]
     Indication: RHEUMATOID ARTHRITIS
     Dosage: 3 DOSES
     Route: 042

REACTIONS (2)
  - PNEUMONIA LEGIONELLA [None]
  - SEPSIS [None]
